FAERS Safety Report 9388164 (Version 1)
Quarter: 2013Q3

REPORT INFORMATION
  Report Type: Spontaneous
  Country: US (occurrence: None)
  Receive Date: 20130703
  Receipt Date: 20130703
  Transmission Date: 20140515
  Serious: Yes (Hospitalization)
  Sender: FDA-Public Use
  Company Number: 1768694

PATIENT
  Age: 64 Year
  Sex: Male

DRUGS (2)
  1. AMIODARONE [Suspect]
     Indication: ARRHYTHMIA PROPHYLAXIS
     Route: 041
  2. LIDOCAINE [Concomitant]

REACTIONS (5)
  - Coronary artery disease [None]
  - Left ventricular dysfunction [None]
  - Cardiac arrest [None]
  - Ventricular tachycardia [None]
  - Ventricular fibrillation [None]
